FAERS Safety Report 6626976-X (Version None)
Quarter: 2010Q1

REPORT INFORMATION
  Report Type: 
  Country: None (occurrence: None)
  Receive Date: 20100311
  Receipt Date: 20100303
  Transmission Date: 20100710
  Serious: Yes (Life-Threatening, Hospitalization)
  Sender: FDA-Public Use
  Company Number: JP-NOVOPROD-304656

PATIENT
  Age: 78 Year
  Sex: Male
  Weight: 92 kg

DRUGS (12)
  1. LEVEMIR [Suspect]
     Indication: TYPE 2 DIABETES MELLITUS
     Dosage: 26 IU, QD
     Route: 058
     Dates: start: 20090126
  2. LEVEMIR [Suspect]
     Dosage: 24 U, UNK
  3. NOVORAPID CHU FLEXPEN [Suspect]
     Indication: TYPE 2 DIABETES MELLITUS
     Dosage: UNK
     Route: 058
  4. NORVASC [Concomitant]
     Indication: HYPERTENSION
     Dosage: 10MG/PO
     Route: 048
  5. MAINTATE [Concomitant]
     Indication: HYPERTENSION
     Dosage: 1TAB/PO
     Route: 048
  6. OLMESARTAN MEDOXOMIL [Concomitant]
     Indication: HYPERTENSION
     Dosage: 20 MG, UNK
     Route: 048
  7. ALOSITOL [Concomitant]
     Indication: HYPERURICAEMIA
     Dosage: 100 MG, UNK
     Route: 048
  8. LIPITOR [Concomitant]
     Indication: HYPERLIPIDAEMIA
     Dosage: 10 MG, UNK
     Route: 048
  9. WARFARIN [Concomitant]
     Indication: MYOCARDIAL INFARCTION
     Dosage: 8 MG, UNK
     Route: 048
  10. ASPIRIN [Concomitant]
     Indication: MYOCARDIAL INFARCTION
     Dosage: 100 MG, UNK
     Route: 048
  11. SIGMART [Concomitant]
     Indication: MYOCARDIAL INFARCTION
     Dosage: 15 MG, UNK
  12. ITOROL [Concomitant]
     Indication: MYOCARDIAL INFARCTION
     Dosage: 20 MG, UNK
     Route: 048

REACTIONS (1)
  - CARDIAC ARREST [None]
